FAERS Safety Report 15121338 (Version 2)
Quarter: 2018Q3

REPORT INFORMATION
  Report Type: Spontaneous
  Country: ZA (occurrence: ZA)
  Receive Date: 20180709
  Receipt Date: 20180719
  Transmission Date: 20181010
  Serious: Yes (Other)
  Sender: FDA-Public Use
  Company Number: ZA-PFIZER INC-2018271282

PATIENT
  Age: 84 Year
  Sex: Female

DRUGS (9)
  1. MACRODANTIN [Suspect]
     Active Substance: NITROFURANTOIN
     Indication: INCONTINENCE
  2. SANDOZ?METFORMIN FC [Suspect]
     Active Substance: METFORMIN HYDROCHLORIDE
     Dosage: 500 MG, UNK
  3. MACRODANTIN [Suspect]
     Active Substance: NITROFURANTOIN
     Indication: VAGINAL INFECTION
     Dosage: 100 MG, UNK
     Dates: start: 201805
  4. VERAHEXAL [Suspect]
     Active Substance: VERAPAMIL HYDROCHLORIDE
     Dosage: 240 MG, UNK
  5. WARFARIN [Suspect]
     Active Substance: WARFARIN
     Dosage: 5 MG, UNK
  6. ASPAVOR [Suspect]
     Active Substance: ATORVASTATIN
     Indication: BLOOD CHOLESTEROL ABNORMAL
     Dosage: 20 MG, UNK
  7. PLENISH K [Suspect]
     Active Substance: POTASSIUM CHLORIDE
     Dosage: 600 MG, UNK
  8. LENDITRO [Suspect]
     Active Substance: OXYBUTYNIN CHLORIDE
     Dosage: 5 MG, UNK
  9. INDAPAMIDE. [Suspect]
     Active Substance: INDAPAMIDE
     Dosage: 1.5 MG, UNK

REACTIONS (1)
  - Cataract [Unknown]
